FAERS Safety Report 5148322-3 (Version None)
Quarter: 2006Q4

REPORT INFORMATION
  Report Type: 
  Country: None (occurrence: None)
  Receive Date: 20061106
  Receipt Date: 20061020
  Transmission Date: 20070319
  Serious: Yes (Hospitalization)
  Sender: FDA-Public Use
  Company Number: 8010119

PATIENT
  Sex: Female
  Weight: 64 kg

DRUGS (7)
  1. KEPPRA [Suspect]
     Indication: EPILEPSY
     Dosage: 1000 MG/D PO
     Route: 048
     Dates: start: 20040210, end: 20040428
  2. KEPPRA [Suspect]
     Indication: EPILEPSY
     Dosage: 3000 MG /D PO
     Route: 048
     Dates: start: 20040429, end: 20040629
  3. KEPPRA [Suspect]
     Indication: EPILEPSY
     Dosage: 4000 MG /D PO
     Route: 048
     Dates: start: 20040429, end: 20040629
  4. KEPPRA [Suspect]
     Indication: EPILEPSY
     Dosage: 4000 MG /D PO
     Route: 048
     Dates: start: 20040630
  5. LYRICA [Concomitant]
  6. TIMONIL [Concomitant]
  7. CARBAMAZEPINE [Concomitant]

REACTIONS (1)
  - DRUG INEFFECTIVE [None]
